FAERS Safety Report 12521332 (Version 2)
Quarter: 2016Q3

REPORT INFORMATION
  Report Type: Report from Study
  Country: GB (occurrence: GB)
  Receive Date: 20160701
  Receipt Date: 20160704
  Transmission Date: 20161109
  Serious: Yes (Hospitalization)
  Sender: FDA-Public Use
  Company Number: GB-ROCHE-1786729

PATIENT
  Sex: Female
  Weight: 88 kg

DRUGS (1)
  1. TOCILIZUMAB [Suspect]
     Active Substance: TOCILIZUMAB
     Indication: RHEUMATOID ARTHRITIS
     Route: 065
     Dates: start: 20150216

REACTIONS (2)
  - Haematoma [Unknown]
  - Fall [Unknown]

NARRATIVE: CASE EVENT DATE: 20151224
